FAERS Safety Report 9898958 (Version 1)
Quarter: 2014Q1

REPORT INFORMATION
  Report Type: Spontaneous
  Country: US (occurrence: US)
  Receive Date: 20140214
  Receipt Date: 20140214
  Transmission Date: 20141002
  Serious: Yes (Other)
  Sender: FDA-Public Use
  Company Number: US-GLAXOSMITHKLINE-A1060821A

PATIENT
  Age: 57 Year
  Sex: Male

DRUGS (7)
  1. ADVAIR [Suspect]
     Indication: CHRONIC OBSTRUCTIVE PULMONARY DISEASE
     Dosage: 1PUFF TWICE PER DAY
     Route: 055
     Dates: start: 200707
  2. SPIRIVA [Concomitant]
  3. SIMCOR [Concomitant]
  4. BENICAR [Concomitant]
  5. METOPROLOL [Concomitant]
  6. VENTOLIN [Concomitant]
  7. ASPIRIN [Concomitant]

REACTIONS (3)
  - Cataract operation [Unknown]
  - Cataract [Not Recovered/Not Resolved]
  - Vision blurred [Not Recovered/Not Resolved]
